FAERS Safety Report 23046932 (Version 1)
Quarter: 2023Q4

REPORT INFORMATION
  Report Type: Spontaneous
  Country: FR (occurrence: FR)
  Receive Date: 20231009
  Receipt Date: 20231009
  Transmission Date: 20240110
  Serious: Yes (Hospitalization)
  Sender: FDA-Public Use
  Company Number: FR-WOODWARD-2023-FR-000162

PATIENT
  Age: 43 Year
  Sex: Female
  Weight: 71 kg

DRUGS (6)
  1. RABEPRAZOLE SODIUM [Suspect]
     Active Substance: RABEPRAZOLE SODIUM
     Indication: Peptic ulcer
     Dosage: 20 MG, 1 D
     Route: 048
     Dates: start: 2020
  2. IXPRIM [Suspect]
     Active Substance: ACETAMINOPHEN\TRAMADOL HYDROCHLORIDE
     Dosage: 2 DOSAGE FORMS, 1 D
     Route: 048
     Dates: start: 202109, end: 20230815
  3. AMITRIPTYLINE [Suspect]
     Active Substance: AMITRIPTYLINE
     Dosage: 30 DOSAGE FORMS, 1 D
     Route: 048
     Dates: start: 202109
  4. VALSARTAN [Suspect]
     Active Substance: VALSARTAN
     Dosage: 40 MG, 1 D
     Route: 048
     Dates: start: 202205
  5. FENTANYL [Concomitant]
     Active Substance: FENTANYL
     Dosage: UNKNOWN DOSE AND FREQUENCY
     Route: 065
  6. ZOLPIDEM TARTRATE [Concomitant]
     Active Substance: ZOLPIDEM TARTRATE
     Dosage: UNKNOWN DOSE AND FREQUENCY
     Route: 065

REACTIONS (1)
  - Polyarteritis nodosa [None]

NARRATIVE: CASE EVENT DATE: 20230501
